FAERS Safety Report 9031517 (Version 2)
Quarter: 2013Q1

REPORT INFORMATION
  Report Type: Report from Study
  Country: AU (occurrence: AU)
  Receive Date: 20130124
  Receipt Date: 20130208
  Transmission Date: 20140127
  Serious: Yes (Other)
  Sender: FDA-Public Use
  Company Number: AU-PFIZER INC-2013015208

PATIENT
  Age: 54 Year
  Sex: Male
  Weight: 77.9 kg

DRUGS (6)
  1. AXITINIB [Suspect]
     Indication: METASTATIC RENAL CELL CARCINOMA
     Dosage: 10 MG, 2X/DAY
     Route: 048
     Dates: start: 20121115, end: 20130110
  2. NEXIUM [Concomitant]
     Indication: GASTROOESOPHAGEAL REFLUX DISEASE
     Dosage: 40 MG, ONCE DAILY
     Route: 048
     Dates: start: 20120621
  3. PROSCAR [Concomitant]
     Indication: PROSTATOMEGALY
     Dosage: 5 MG, ONCE DAILY
     Route: 048
     Dates: start: 20120820
  4. TEMAZEPAM [Concomitant]
     Indication: INSOMNIA
     Dosage: 20 MG, ONCE DAILY
     Route: 048
     Dates: start: 20120901
  5. NORDIP [Concomitant]
     Indication: HYPERTENSION
     Dosage: 5 MG, ONCE DAILY
     Route: 048
     Dates: start: 20120625
  6. FLUCLOXACILLIN [Concomitant]
     Indication: CELLULITIS
     Dosage: 500 MG, 4X/DAY
     Route: 048
     Dates: start: 20121213, end: 20121223

REACTIONS (2)
  - Second primary malignancy [Recovered/Resolved]
  - Squamous cell carcinoma [Recovered/Resolved]
